FAERS Safety Report 7094482-7 (Version None)
Quarter: 2010Q4

REPORT INFORMATION
  Report Type: 
  Country: None (occurrence: None)
  Receive Date: 20101110
  Receipt Date: 20101102
  Transmission Date: 20110411
  Serious: Yes (Other)
  Sender: FDA-Public Use
  Company Number: US-PFIZER INC-2010128437

PATIENT
  Sex: Female
  Weight: 95.238 kg

DRUGS (5)
  1. DETROL LA [Suspect]
     Indication: URINARY INCONTINENCE
     Dosage: 4 MG, DAILY
     Route: 048
     Dates: start: 20100101
  2. DETROL LA [Suspect]
     Indication: HYPERTONIC BLADDER
  3. ZOLOFT [Concomitant]
     Dosage: 100 MG, DAILY
     Dates: start: 20030101
  4. NORVASC [Concomitant]
     Dosage: 10 MG, DAILY
     Dates: start: 20030101
  5. ACETYLSALICYLIC ACID [Concomitant]
     Dosage: UNK, DAILY

REACTIONS (6)
  - DRUG EFFECT DECREASED [None]
  - MALAISE [None]
  - MUSCULOSKELETAL PAIN [None]
  - MYOPATHY [None]
  - NECK PAIN [None]
  - PAIN [None]
